FAERS Safety Report 6671201-7 (Version None)
Quarter: 2010Q2

REPORT INFORMATION
  Report Type: 
  Country: None (occurrence: None)
  Receive Date: 20100407
  Receipt Date: 20100402
  Transmission Date: 20101027
  Serious: Yes (Hospitalization)
  Sender: FDA-Public Use
  Company Number: US-ELI_LILLY_AND_COMPANY-US201002004758

PATIENT
  Sex: Male

DRUGS (1)
  1. HUMULIN N [Suspect]

REACTIONS (1)
  - CARDIAC OPERATION [None]
